FAERS Safety Report 8510177-4 (Version None)
Quarter: 2012Q3

REPORT INFORMATION
  Report Type: 
  Country: None (occurrence: None)
  Receive Date: 20120713
  Receipt Date: 20120710
  Transmission Date: 20120928
  Serious: Yes (Death)
  Sender: FDA-Public Use
  Company Number: US-CELGENEUS-163-21880-12061892

PATIENT
  Sex: Male

DRUGS (1)
  1. REVLIMID [Suspect]
     Indication: MULTIPLE MYELOMA
     Route: 048
     Dates: start: 20101227, end: 20120113

REACTIONS (7)
  - PANCREATITIS ACUTE [None]
  - RENAL FAILURE ACUTE [None]
  - ACUTE HEPATIC FAILURE [None]
  - RESPIRATORY FAILURE [None]
  - HYPERGLYCAEMIA [None]
  - ATRIAL FIBRILLATION [None]
  - MULTIPLE MYELOMA [None]
